FAERS Safety Report 9366074 (Version 2)
Quarter: 2013Q3

REPORT INFORMATION
  Report Type: Spontaneous
  Country: US (occurrence: US)
  Receive Date: 20130625
  Receipt Date: 20130731
  Transmission Date: 20140515
  Serious: Yes (Hospitalization, Other)
  Sender: FDA-Public Use
  Company Number: US-PFIZER INC-2013186196

PATIENT
  Age: 69 Year
  Sex: Male

DRUGS (1)
  1. SUTENT [Suspect]
     Indication: RENAL CANCER
     Dosage: 50 MG, CYCLIC (4WKS ON, 2 WKS OFF)
     Dates: start: 20120626

REACTIONS (5)
  - Diverticulitis [Unknown]
  - Abdominal pain upper [Unknown]
  - Pancytopenia [Unknown]
  - Cholangitis [Unknown]
  - Cholelithiasis [Unknown]
